FAERS Safety Report 12165521 (Version 1)
Quarter: 2016Q1

REPORT INFORMATION
  Report Type: Spontaneous
  Country: US (occurrence: US)
  Receive Date: 20160309
  Receipt Date: 20160309
  Transmission Date: 20160526
  Serious: No
  Sender: FDA-Public Use
  Company Number: US-SHIRE-US-000694

PATIENT
  Age: 21 Year
  Sex: Female

DRUGS (10)
  1. PARENTERAL NUTRITION [Concomitant]
     Active Substance: AMINO ACIDS\DEXTROSE\ELECTROLYTES NOS
  2. SOUCONAZOLE [Concomitant]
     Dosage: STREN/VOLUM: 200MG |FREQU: 2XDAY
  3. GATTEX [Suspect]
     Active Substance: TEDUGLUTIDE\WATER
     Indication: SHORT-BOWEL SYNDROME
     Dosage: STREN/VOLUM: 0.26 ML|FREQU: DAILY
     Route: 058
     Dates: start: 20130416, end: 20130418
  4. OXYCODONE [Concomitant]
     Active Substance: OXYCODONE
     Indication: PAIN
     Dosage: STREN/VOLUM: 30MG TAB|FREQU: 1.5 TAB EVERY 3 HRS
  5. IMODIUM [Concomitant]
     Active Substance: LOPERAMIDE HYDROCHLORIDE
     Dosage: STREN/VOLUM: 2 MG |FREQU: 2 EVERY 8 HRS
  6. LATATED RINGER IV SOLUTION [Concomitant]
     Indication: FLUID REPLACEMENT
     Dosage: FREQU: PRN
  7. AZATHIOTRINE [Concomitant]
     Indication: IMMUNOSUPPRESSANT DRUG THERAPY
     Dosage: STREN/VOLUM: 50MG |FREQU: DAILY
  8. METHADONE [Concomitant]
     Active Substance: METHADONE HYDROCHLORIDE
     Indication: PAIN
     Dosage: STREN/VOLUM: 5MG|FREQU: EVERY 6 HOURS
  9. ZOFRAN [Concomitant]
     Active Substance: ONDANSETRON HYDROCHLORIDE
     Indication: NAUSEA
     Dosage: STREN/VOLUM: 4 MG  |FREQU: EVERY 8 HRS
  10. LOMOTIL [Concomitant]
     Active Substance: ATROPINE SULFATE\DIPHENOXYLATE HYDROCHLORIDE
     Dosage: STREN/VOLUM: 2 TABS |FREQU: EVERY 6 HOURS

REACTIONS (2)
  - Abdominal pain [Unknown]
  - Abdominal distension [Unknown]

NARRATIVE: CASE EVENT DATE: 20130418
